FAERS Safety Report 14559221 (Version 1)
Quarter: 2018Q1

REPORT INFORMATION
  Report Type: Spontaneous
  Country: US (occurrence: US)
  Receive Date: 20180221
  Receipt Date: 20180221
  Transmission Date: 20180509
  Serious: Yes (Other)
  Sender: FDA-Public Use
  Company Number: None

PATIENT
  Age: 54 Year
  Sex: Female
  Weight: 49.9 kg

DRUGS (7)
  1. ALPRAZOLAM. [Suspect]
     Active Substance: ALPRAZOLAM
     Indication: DRUG THERAPY
     Route: 048
     Dates: end: 20180110
  2. VITAMIN A AND D [Concomitant]
     Active Substance: LANOLIN\PETROLATUM
  3. VITAMIN C [Concomitant]
     Active Substance: ASCORBIC ACID
  4. B2 [Concomitant]
  5. CRAB-GRASS [Concomitant]
  6. VITAMIN B12 [Concomitant]
     Active Substance: CYANOCOBALAMIN
  7. D-AMPHETAMINE [Concomitant]
     Active Substance: DEXTROAMPHETAMINE

REACTIONS (3)
  - Product substitution issue [None]
  - Drug ineffective [None]
  - Cardiac valve disease [None]

NARRATIVE: CASE EVENT DATE: 20171110
